FAERS Safety Report 23912340 (Version 1)
Quarter: 2024Q2

REPORT INFORMATION
  Report Type: Spontaneous
  Country: US (occurrence: US)
  Receive Date: 20240528
  Receipt Date: 20240528
  Transmission Date: 20240715
  Serious: Yes (Other)
  Sender: FDA-Public Use
  Company Number: US-009507513-2405USA008130

PATIENT
  Age: 65 Year
  Sex: Male

DRUGS (4)
  1. KEYTRUDA [Suspect]
     Active Substance: PEMBROLIZUMAB
     Indication: Squamous cell carcinoma of head and neck
  2. CARBOPLATIN [Concomitant]
     Active Substance: CARBOPLATIN
     Indication: Squamous cell carcinoma of head and neck
  3. ETOPOSIDE [Concomitant]
     Active Substance: ETOPOSIDE
     Indication: Squamous cell carcinoma of head and neck
  4. DENOSUMAB [Concomitant]
     Active Substance: DENOSUMAB
     Indication: Squamous cell carcinoma of head and neck

REACTIONS (4)
  - Scleroderma renal crisis [Recovering/Resolving]
  - Immune-mediated nephritis [Not Recovered/Not Resolved]
  - Drug ineffective [Unknown]
  - Immune-mediated dermatitis [Not Recovered/Not Resolved]
